FAERS Safety Report 12381724 (Version 1)
Quarter: 2016Q2

REPORT INFORMATION
  Report Type: Spontaneous
  Country: US (occurrence: US)
  Receive Date: 20160518
  Receipt Date: 20160518
  Transmission Date: 20160815
  Serious: No
  Sender: FDA-Public Use
  Company Number: US-TEIKOKU PHARMA USA-TPU2016-00312

PATIENT
  Sex: Male
  Weight: 72.64 kg

DRUGS (2)
  1. STATIN [Concomitant]
     Active Substance: UNSPECIFIED INGREDIENT
     Indication: PRODUCT USED FOR UNKNOWN INDICATION
  2. LIDOCAINE PATCH [Suspect]
     Active Substance: LIDOCAINE
     Indication: HERPES ZOSTER
     Dosage: 2-3 PATCHES APPLIED TO AFFECTED AREA (SHINGLES) ON BACK
     Dates: start: 2015

REACTIONS (4)
  - Wrong technique in product usage process [Unknown]
  - Herpes zoster [Unknown]
  - Condition aggravated [Unknown]
  - Drug ineffective [Unknown]
